FAERS Safety Report 8497345-5 (Version None)
Quarter: 2012Q3

REPORT INFORMATION
  Report Type: 
  Country: None (occurrence: None)
  Receive Date: 20120709
  Receipt Date: 20120608
  Transmission Date: 20120928
  Serious: No
  Sender: FDA-Public Use
  Company Number: US-AMGEN-USASP2012036466

PATIENT
  Sex: Female

DRUGS (4)
  1. MELATONIN [Concomitant]
     Dosage: UNK
  2. VICODIN [Concomitant]
     Dosage: UNK
  3. ENBREL [Suspect]
     Indication: ANKYLOSING SPONDYLITIS
     Dosage: 25 MG, 2 TIMES/WK
     Dates: start: 20120101
  4. INDOCIN                            /00003801/ [Concomitant]
     Dosage: UNK

REACTIONS (1)
  - PSORIASIS [None]
